FAERS Safety Report 6201214-0 (Version None)
Quarter: 2009Q2

REPORT INFORMATION
  Report Type: 
  Country: None (occurrence: None)
  Receive Date: 20090526
  Receipt Date: 20090514
  Transmission Date: 20091009
  Serious: Yes (Other)
  Sender: FDA-Public Use
  Company Number: CH-JNJFOC-20090501696

PATIENT
  Sex: Male
  Weight: 71 kg

DRUGS (8)
  1. JURNISTA [Suspect]
     Route: 048
  2. JURNISTA [Suspect]
     Indication: NEURALGIA
     Route: 048
  3. FENTANYL [Suspect]
     Indication: NEURALGIA
     Route: 062
  4. ALL OTHER THERAPEUTIC DRUGS [Concomitant]
     Indication: HYPERTONIC BLADDER
     Route: 048
  5. MINIRIN [Concomitant]
     Indication: POLYURIA
     Route: 045
  6. LIORESAL [Concomitant]
     Indication: MUSCLE SPASTICITY
     Route: 048
  7. NEXIUM [Concomitant]
     Indication: PROPHYLAXIS
     Route: 048
  8. LYRICA [Concomitant]
     Indication: NEURALGIA
     Route: 048

REACTIONS (3)
  - ACCIDENTAL OVERDOSE [None]
  - DRUG INEFFECTIVE [None]
  - DYSKINESIA [None]
